FAERS Safety Report 5261604-X (Version None)
Quarter: 2007Q1

REPORT INFORMATION
  Report Type: 
  Country: None (occurrence: None)
  Receive Date: 20070307
  Receipt Date: 20070223
  Transmission Date: 20070707
  Serious: Yes (Death, Other)
  Sender: FDA-Public Use
  Company Number: 2007-00071

PATIENT
  Age: 71 Year
  Sex: Female

DRUGS (18)
  1. VELCADE [Suspect]
     Indication: MULTIPLE MYELOMA
     Dosage: 1.80 MG, 1.40 MG
     Dates: start: 20061218, end: 20061225
  2. VELCADE [Suspect]
     Indication: MULTIPLE MYELOMA
     Dosage: 1.80 MG, 1.40 MG
     Dates: start: 20061228, end: 20061228
  3. DECADRON [Concomitant]
  4. FAMOTIDINE [Concomitant]
  5. BAKTAR (SULFAMETHOXAZOLE, TRIMETHOPRIM) [Concomitant]
  6. THALIDOMIDE [Concomitant]
  7. VENOGLOBULIN-I [Concomitant]
  8. NEUPOGEN [Concomitant]
  9. SOLU-CORTEF [Concomitant]
  10. VITAMEDIN INTRAVENOUS (PYRIDOXINE HYDROCHLORIDE, THIAMINE DISULFIDE, C [Concomitant]
  11. ASCORBIC ACID [Concomitant]
  12. VORICONAZOLE (VORICONAZOLE) [Concomitant]
  13. MYONAL (EPERISONE HYDROCHLORIDE) [Concomitant]
  14. ALLOPURINOL [Concomitant]
  15. CEROCRAL (IFENPRODIL TARTRATE) [Concomitant]
  16. MAGNESIUM OXIDE (MAGNESIUM OXIDE) [Concomitant]
  17. MEROPEN (MEROPENEM) [Concomitant]
  18. ALBUMIN (HUMAN) [Concomitant]

REACTIONS (4)
  - BONE MARROW FAILURE [None]
  - INTERSTITIAL LUNG DISEASE [None]
  - MYELODYSPLASTIC SYNDROME [None]
  - PNEUMONIA ASPIRATION [None]
